FAERS Safety Report 24183420 (Version 1)
Quarter: 2024Q3

REPORT INFORMATION
  Report Type: Spontaneous
  Country: US (occurrence: None)
  Receive Date: 20240806
  Receipt Date: 20240806
  Transmission Date: 20241017
  Serious: Yes (Other)
  Sender: Public
  Company Number: None

PATIENT
  Age: 39 Year
  Sex: Male

DRUGS (6)
  1. CABENUVA [Suspect]
     Active Substance: CABOTEGRAVIR\RILPIVIRINE
     Indication: HIV infection
     Dosage: 4 ML MONTHLY INTRAMUSCULAR
     Route: 030
     Dates: start: 20221201, end: 20240801
  2. Clonidine 0.3mg patch [Concomitant]
     Dates: start: 20240804
  3. FUROSEMIDE [Concomitant]
     Active Substance: FUROSEMIDE
     Dates: start: 20240804
  4. HYDRALAZINE [Concomitant]
     Active Substance: HYDRALAZINE HYDROCHLORIDE
     Dates: start: 20231006
  5. Losartan/HCTZ 100/25mg [Concomitant]
     Dates: start: 20231006
  6. VITAMIN D2 [Concomitant]
     Active Substance: ERGOCALCIFEROL
     Dates: start: 20231127

REACTIONS (2)
  - Blood HIV RNA increased [None]
  - Therapy cessation [None]

NARRATIVE: CASE EVENT DATE: 20240801
